FAERS Safety Report 16754203 (Version 1)
Quarter: 2019Q3

REPORT INFORMATION
  Report Type: Spontaneous
  Country: US (occurrence: US)
  Receive Date: 20190829
  Receipt Date: 20190829
  Transmission Date: 20191005
  Serious: No
  Sender: FDA-Public Use
  Company Number: US-TEVA-2019-US-1098621

PATIENT
  Sex: Female

DRUGS (3)
  1. CLONAZEPAM. [Suspect]
     Active Substance: CLONAZEPAM
     Indication: FIBROMYALGIA
     Route: 065
     Dates: start: 2015
  2. CLONAZEPAM. [Suspect]
     Active Substance: CLONAZEPAM
     Indication: DYSPHAGIA
     Dosage: TAPERED DOSE 0.3MG
     Route: 065
     Dates: start: 2015
  3. CLONAZEPAM. [Suspect]
     Active Substance: CLONAZEPAM
     Indication: NEUROMYOPATHY

REACTIONS (7)
  - Hypoaesthesia [Unknown]
  - Paraesthesia [Unknown]
  - Aphasia [Unknown]
  - Product use in unapproved indication [Unknown]
  - Asthenia [Unknown]
  - Insomnia [Unknown]
  - Wrong technique in product usage process [Unknown]

NARRATIVE: CASE EVENT DATE: 2015
